FAERS Safety Report 7445261-X (Version None)
Quarter: 2011Q2

REPORT INFORMATION
  Report Type: 
  Country: None (occurrence: None)
  Receive Date: 20110429
  Receipt Date: 20110321
  Transmission Date: 20111010
  Serious: Yes (Hospitalization, Other)
  Sender: FDA-Public Use
  Company Number: US-BAYER-2010-002108

PATIENT
  Age: 19 Year
  Sex: Female
  Weight: 77.1 kg

DRUGS (2)
  1. YASMIN [Suspect]
     Indication: PRODUCT USED FOR UNKNOWN INDICATION
  2. PREVACID [Concomitant]

REACTIONS (2)
  - GALLBLADDER INJURY [None]
  - CHOLECYSTITIS CHRONIC [None]
